FAERS Safety Report 8007121-5 (Version None)
Quarter: 2011Q4

REPORT INFORMATION
  Report Type: 
  Country: None (occurrence: None)
  Receive Date: 20111227
  Receipt Date: 20111221
  Transmission Date: 20120403
  Serious: Yes (Life-Threatening)
  Sender: FDA-Public Use
  Company Number: FR-PFIZER INC-2011305066

PATIENT
  Age: 50 Year
  Sex: Female

DRUGS (16)
  1. ACETAMINOPHEN [Concomitant]
     Dosage: 1 G, 4X/DAY
  2. BRICANYL [Concomitant]
     Dosage: 3 DF DAILY
  3. NEXIUM [Concomitant]
     Dosage: 40 MG DAILY
  4. VALACYCLOVIR HYDROCHLORIDE [Concomitant]
     Dosage: 100 MG, 2X/DAY
  5. PROGRAF [Suspect]
     Indication: IMMUNOSUPPRESSION
     Dosage: UNK
     Dates: start: 20111107, end: 20111116
  6. CYCLOSPORINE [Suspect]
     Indication: IMMUNOSUPPRESSION
     Dosage: UNK
     Route: 042
     Dates: start: 20111024, end: 20111109
  7. MYCOPHENOLATE MOFETIL (CELLCEPT) [Suspect]
     Indication: IMMUNOSUPPRESSION
     Dosage: 1 G, 2X/DAY
     Dates: start: 20111024
  8. INVANZ [Suspect]
     Indication: INFECTION
     Dosage: UNK
     Dates: start: 20111110, end: 20111114
  9. VFEND [Suspect]
     Indication: INFECTION
     Dosage: 400 MG, 2X/DAY
     Dates: start: 20111024
  10. CYCLOSPORINE [Suspect]
     Dosage: UNK
     Dates: start: 20111116
  11. EPREX [Suspect]
     Indication: ANAEMIA
     Dosage: 8000 IU, 3X/WEEK
     Dates: start: 20111024
  12. PREDNISONE TAB [Concomitant]
     Dosage: UNK
  13. UMULINE [Concomitant]
  14. LASIX [Concomitant]
     Dosage: 40 MG DAILY
  15. LEUCOVORIN CALCIUM [Concomitant]
     Dosage: 25 MG, 3X/WEEK
  16. ATROVENT [Concomitant]
     Dosage: 3 DF DAILY

REACTIONS (1)
  - POSTERIOR REVERSIBLE ENCEPHALOPATHY SYNDROME [None]
